FAERS Safety Report 25357284 (Version 1)
Quarter: 2025Q2

REPORT INFORMATION
  Report Type: Spontaneous
  Country: CN (occurrence: CN)
  Receive Date: 20250526
  Receipt Date: 20250526
  Transmission Date: 20250717
  Serious: Yes (Hospitalization, Other)
  Sender: BAXTER
  Company Number: None

PATIENT
  Age: 6 Year
  Sex: Male
  Weight: 25 kg

DRUGS (5)
  1. CYCLOPHOSPHAMIDE [Suspect]
     Active Substance: CYCLOPHOSPHAMIDE
     Indication: Acute lymphocytic leukaemia
     Dosage: 0.865 G, QD, (DILUTED WITH 250 ML OF 0.9% SODIUM CHLORIDE INJECTION)
     Route: 041
     Dates: start: 20250221, end: 20250221
  2. SODIUM CHLORIDE [Suspect]
     Active Substance: SODIUM CHLORIDE
     Indication: Medication dilution
     Dosage: (0.9%) 250 ML, QD (USED TO DILUTE 0.865 G OF CYCLOPHOSPHAMIDE FOR INJECTION)
     Route: 041
     Dates: start: 20250221, end: 20250221
  3. SODIUM CHLORIDE [Suspect]
     Active Substance: SODIUM CHLORIDE
     Dosage: (0.9%) 250 ML, BID (USED TO DILUTE CYTARABINE FOR INJECTION 0.865G)
     Route: 041
     Dates: start: 20250221, end: 20250224
  4. MERCAPTOPURINE [Suspect]
     Active Substance: MERCAPTOPURINE
     Indication: Acute lymphocytic leukaemia
     Dosage: 43 MG, QD (QN)
     Route: 048
     Dates: start: 20250221, end: 20250224
  5. CYTARABINE [Suspect]
     Active Substance: CYTARABINE
     Indication: Acute lymphocytic leukaemia
     Dosage: 0.865 G, BID (DILUTED WITH 0.9% SODIUM CHLORIDE INJECTION 250ML)
     Route: 041
     Dates: start: 20250221, end: 20250224

REACTIONS (1)
  - Myelosuppression [Recovering/Resolving]

NARRATIVE: CASE EVENT DATE: 20250227
